FAERS Safety Report 11565439 (Version 4)
Quarter: 2016Q1

REPORT INFORMATION
  Report Type: Spontaneous
  Country: US (occurrence: US)
  Receive Date: 20150928
  Receipt Date: 20160310
  Transmission Date: 20160525
  Serious: No
  Sender: FDA-Public Use
  Company Number: US-OTSUKA-2015_004794

PATIENT
  Age: 16 Year
  Sex: Male
  Weight: 55.56 kg

DRUGS (2)
  1. ABILIFY MAINTENA [Suspect]
     Active Substance: ARIPIPRAZOLE
     Indication: SCHIZOPHRENIA
     Dosage: 300 MG, UNK
     Route: 030
     Dates: start: 20150627
  2. ABILIFY MAINTENA [Suspect]
     Active Substance: ARIPIPRAZOLE
     Indication: BIPOLAR DISORDER

REACTIONS (7)
  - Eye movement disorder [Recovering/Resolving]
  - Movement disorder [Recovering/Resolving]
  - Feeling abnormal [Recovering/Resolving]
  - Akathisia [Recovering/Resolving]
  - Drug administered to patient of inappropriate age [Unknown]
  - Off label use [Unknown]
  - Tongue disorder [Recovering/Resolving]

NARRATIVE: CASE EVENT DATE: 20150630
